FAERS Safety Report 23887204 (Version 2)
Quarter: 2024Q3

REPORT INFORMATION
  Report Type: Spontaneous
  Country: US (occurrence: US)
  Receive Date: 20240523
  Receipt Date: 20240709
  Transmission Date: 20241017
  Serious: No
  Sender: Haleon PLC
  Company Number: US-HALEON-2177046

PATIENT
  Age: 50 Year
  Sex: Male

DRUGS (3)
  1. PARODONTAX ACTIVE GUM REPAIR WHITENING [Suspect]
     Active Substance: STANNOUS FLUORIDE
     Dosage: EXPDATE:20251130
     Dates: start: 20240513, end: 20240516
  2. PARODONTAX ACTIVE GUM REPAIR WHITENING [Suspect]
     Active Substance: STANNOUS FLUORIDE
     Indication: Product used for unknown indication
  3. PARODONTAX ACTIVE GUM REPAIR BREATH FRESHENER [Suspect]
     Active Substance: STANNOUS FLUORIDE
     Indication: Product used for unknown indication

REACTIONS (4)
  - Tongue discomfort [Recovered/Resolved]
  - Glossitis [Not Recovered/Not Resolved]
  - Cheilitis [Not Recovered/Not Resolved]
  - Oral discomfort [Not Recovered/Not Resolved]

NARRATIVE: CASE EVENT DATE: 20240514
